FAERS Safety Report 4839982-2 (Version None)
Quarter: 2005Q4

REPORT INFORMATION
  Report Type: 
  Country: None (occurrence: None)
  Receive Date: 20051125
  Receipt Date: 20051117
  Transmission Date: 20060501
  Serious: Yes (Other)
  Sender: FDA-Public Use
  Company Number: 2005-11-0980

PATIENT
  Age: 40 Year
  Sex: Female

DRUGS (3)
  1. GRISEOFULVIN [Suspect]
     Indication: FUNGAL INFECTION
     Dosage: 500 MG QD
  2. GLIPIZIDE [Concomitant]
  3. AMLODIPINE [Concomitant]

REACTIONS (2)
  - ERYTHEMA MULTIFORME [None]
  - HYPERSENSITIVITY [None]
